FAERS Safety Report 23844734 (Version 1)
Quarter: 2024Q2

REPORT INFORMATION
  Report Type: Spontaneous
  Country: US (occurrence: US)
  Receive Date: 20240511
  Receipt Date: 20240511
  Transmission Date: 20240716
  Serious: Yes (Hospitalization, Other)
  Sender: FDA-Public Use
  Company Number: US-CADILA HEALTHCARE LIMITED-US-ZYDUS-106755

PATIENT

DRUGS (7)
  1. DOXYCYCLINE [Suspect]
     Active Substance: DOXYCYCLINE
     Indication: Lyme disease
     Dosage: UNK
     Route: 065
  2. ACETAZOLAMIDE [Suspect]
     Active Substance: ACETAZOLAMIDE
     Indication: Evidence based treatment
     Dosage: 1000 MILLIGRAM, BID
     Route: 042
  3. ACETAZOLAMIDE [Suspect]
     Active Substance: ACETAZOLAMIDE
     Indication: Intracranial pressure increased
  4. METHYLPREDNISOLONE [Suspect]
     Active Substance: METHYLPREDNISOLONE
     Indication: Evidence based treatment
     Dosage: 100 MILLIGRAM, QID
     Route: 042
  5. METHYLPREDNISOLONE [Suspect]
     Active Substance: METHYLPREDNISOLONE
     Indication: Intracranial pressure increased
  6. CEFTRIAXONE [Concomitant]
     Active Substance: CEFTRIAXONE\CEFTRIAXONE SODIUM
     Indication: Evidence based treatment
     Dosage: 100 MILLIGRAM/KILOGRAM, QD
     Route: 042
  7. AMOXICILLIN [Concomitant]
     Active Substance: AMOXICILLIN
     Indication: Lyme disease
     Dosage: UNK
     Route: 065

REACTIONS (8)
  - Colour blindness [Unknown]
  - Neurological symptom [Unknown]
  - Condition aggravated [Unknown]
  - Intracranial pressure increased [Unknown]
  - Vision blurred [Unknown]
  - Electrolyte imbalance [Unknown]
  - Hypokalaemia [Unknown]
  - Drug ineffective [Unknown]
